FAERS Safety Report 6385521-7 (Version None)
Quarter: 2009Q4

REPORT INFORMATION
  Report Type: 
  Country: None (occurrence: None)
  Receive Date: 20091002
  Receipt Date: 20081015
  Transmission Date: 20100525
  Serious: No
  Sender: FDA-Public Use
  Company Number: US-ASTRAZENECA-2008UW19608

PATIENT
  Age: 66 Year
  Sex: Female

DRUGS (2)
  1. ARIMIDEX [Suspect]
     Indication: BREAST CANCER
     Route: 048
     Dates: start: 20080815
  2. CRESTOR [Concomitant]
     Route: 048

REACTIONS (7)
  - CHEST DISCOMFORT [None]
  - DIZZINESS [None]
  - FATIGUE [None]
  - GASTROINTESTINAL DISORDER [None]
  - HEADACHE [None]
  - HOT FLUSH [None]
  - VERTIGO [None]
